FAERS Safety Report 5575972-2 (Version None)
Quarter: 2007Q4

REPORT INFORMATION
  Report Type: 
  Country: None (occurrence: None)
  Receive Date: 20071228
  Receipt Date: 20071219
  Transmission Date: 20080405
  Serious: Yes (Hospitalization)
  Sender: FDA-Public Use
  Company Number: PHBS2007JP21270

PATIENT
  Age: 68 Year
  Sex: Male
  Weight: 62 kg

DRUGS (5)
  1. DIOVAN [Suspect]
     Indication: HYPERTENSION
     Dosage: 40 MG/DAY
     Route: 048
  2. AMLODIN [Suspect]
     Dosage: 5 MG/DAY
     Route: 048
  3. PLETAL [Suspect]
     Dosage: 200 MG/DAY
     Route: 048
  4. GASTER D [Suspect]
  5. TEGRETOL [Suspect]
     Indication: TRIGEMINAL NEURALGIA
     Dosage: 200 MG/DAY
     Route: 048
     Dates: start: 20070913, end: 20071029

REACTIONS (17)
  - ALANINE AMINOTRANSFERASE INCREASED [None]
  - ASPARTATE AMINOTRANSFERASE INCREASED [None]
  - BLOOD ALKALINE PHOSPHATASE INCREASED [None]
  - BLOOD BILIRUBIN INCREASED [None]
  - BLOOD CREATININE INCREASED [None]
  - BLOOD LACTATE DEHYDROGENASE INCREASED [None]
  - BLOOD UREA INCREASED [None]
  - C-REACTIVE PROTEIN INCREASED [None]
  - EOSINOPHIL PERCENTAGE INCREASED [None]
  - GAMMA-GLUTAMYLTRANSFERASE INCREASED [None]
  - HAEMATOCRIT DECREASED [None]
  - HAEMOGLOBIN DECREASED [None]
  - LIVER DISORDER [None]
  - NEPHRITIS INTERSTITIAL [None]
  - RENAL DISORDER [None]
  - URINE OUTPUT DECREASED [None]
  - URTICARIA [None]
